FAERS Safety Report 11265571 (Version 2)
Quarter: 2016Q1

REPORT INFORMATION
  Report Type: Spontaneous
  Country: SE (occurrence: SE)
  Receive Date: 20150713
  Receipt Date: 20160218
  Transmission Date: 20160525
  Serious: Yes (Other)
  Sender: FDA-Public Use
  Company Number: SE-TEVA-576985ISR

PATIENT
  Age: 62 Year
  Sex: Female

DRUGS (2)
  1. ZOLPIDEM RATIOPHARM 10 MG FILMDRAGERAD TABLETT [Suspect]
     Active Substance: ZOLPIDEM TARTRATE
     Indication: INSOMNIA
     Route: 048
     Dates: start: 20150522
  2. SERTRALINE [Concomitant]
     Active Substance: SERTRALINE HYDROCHLORIDE

REACTIONS (4)
  - Sleep disorder [Unknown]
  - Somnambulism [Unknown]
  - Amnesia [Unknown]
  - Upper limb fracture [Not Recovered/Not Resolved]

NARRATIVE: CASE EVENT DATE: 20150523
